FAERS Safety Report 23365720 (Version 2)
Quarter: 2024Q2

REPORT INFORMATION
  Report Type: Spontaneous
  Country: FR (occurrence: FR)
  Receive Date: 20240104
  Receipt Date: 20240513
  Transmission Date: 20240716
  Serious: Yes (Other)
  Sender: FDA-Public Use
  Company Number: None

PATIENT
  Age: 8 Year
  Sex: Male
  Weight: 29.7 kg

DRUGS (2)
  1. TOUJEO [Suspect]
     Active Substance: INSULIN GLARGINE
     Indication: Type 1 diabetes mellitus
     Dosage: UNK
     Route: 058
     Dates: end: 20231129
  2. TOUJEO [Suspect]
     Active Substance: INSULIN GLARGINE
     Dosage: 11 IU
     Route: 058
     Dates: start: 20231129, end: 20231129

REACTIONS (3)
  - Acetonaemia [Recovered/Resolved]
  - Hyperglycaemia [Recovered/Resolved]
  - Drug ineffective [Unknown]

NARRATIVE: CASE EVENT DATE: 20231130
